FAERS Safety Report 5977757-1 (Version None)
Quarter: 2008Q4

REPORT INFORMATION
  Report Type: 
  Country: None (occurrence: None)
  Receive Date: 20081203
  Receipt Date: 20081202
  Transmission Date: 20090506
  Serious: No
  Sender: FDA-Public Use
  Company Number: US-JNJFOC-20081102619

PATIENT
  Sex: Male

DRUGS (12)
  1. DURAGESIC-100 [Suspect]
     Indication: DRUG USE FOR UNKNOWN INDICATION
     Route: 062
  2. LACTULOSE [Concomitant]
  3. NITROGLYCERIN [Concomitant]
     Route: 065
  4. LIPITOR [Concomitant]
     Route: 065
  5. ISOSORBIDE MN [Concomitant]
     Route: 065
  6. ATENOLOL [Concomitant]
     Route: 065
  7. LYRICA [Concomitant]
     Route: 065
  8. NIASPAN [Concomitant]
     Route: 065
  9. RANEXA [Concomitant]
     Route: 065
  10. UNKNOWN DRUGS [Concomitant]
     Indication: DRUG USE FOR UNKNOWN INDICATION
     Route: 065
  11. NORASC [Concomitant]
  12. TEGRUTOL [Concomitant]

REACTIONS (3)
  - INADEQUATE ANALGESIA [None]
  - INAPPROPRIATE SCHEDULE OF DRUG ADMINISTRATION [None]
  - PRODUCT QUALITY ISSUE [None]
